FAERS Safety Report 9851388 (Version 2)
Quarter: 2014Q1

REPORT INFORMATION
  Report Type: Spontaneous
  Country: IN (occurrence: IN)
  Receive Date: 20140129
  Receipt Date: 20140131
  Transmission Date: 20141002
  Serious: Yes (Death)
  Sender: FDA-Public Use
  Company Number: IN-009507513-1401IND010381

PATIENT
  Age: 48 Year
  Sex: Male

DRUGS (2)
  1. INTRONA [Suspect]
     Dosage: 18 MIU, HAD TAKEN 22 INJECTIONS
     Dates: end: 2012
  2. REBETOL [Suspect]
     Dosage: UNK
     Route: 048

REACTIONS (1)
  - Liver injury [Fatal]
